FAERS Safety Report 10779183 (Version 2)
Quarter: 2015Q1

REPORT INFORMATION
  Report Type: Spontaneous
  Country: IT (occurrence: None)
  Receive Date: 20150206
  Receipt Date: 20150226
  Transmission Date: 20150721
  Serious: Yes (Death, Life-Threatening, Hospitalization)
  Sender: FDA-Public Use
  Company Number: 2725661

PATIENT
  Age: 79 Year
  Sex: Female

DRUGS (34)
  1. ZOLOFT [Concomitant]
     Active Substance: SERTRALINE HYDROCHLORIDE
  2. PANTOPRAZOLE [Concomitant]
     Active Substance: PANTOPRAZOLE SODIUM
  3. REPAGLINIDE. [Concomitant]
     Active Substance: REPAGLINIDE
  4. ACTRAPID [Concomitant]
     Active Substance: INSULIN HUMAN
  5. SODIUM BICARBONATE. [Concomitant]
     Active Substance: SODIUM BICARBONATE
  6. CYMBALTA [Concomitant]
     Active Substance: DULOXETINE HYDROCHLORIDE
  7. GLYCERYL TRINITRATE [Concomitant]
     Active Substance: NITROGLYCERIN
  8. GARDENALE [Concomitant]
     Active Substance: PHENOBARBITAL
  9. NITRODERM [Concomitant]
     Active Substance: NITROGLYCERIN
  10. HUMALOG [Concomitant]
     Active Substance: INSULIN LISPRO
  11. TRANSACT LAT [Concomitant]
  12. ARANESP [Concomitant]
     Active Substance: DARBEPOETIN ALFA
  13. POLASE [Concomitant]
     Active Substance: MAGNESIUM ASPARTATE\POTASSIUM ASPARTATE
  14. POTASSIUM [Concomitant]
     Active Substance: POTASSIUM
  15. IVABRADINE [Concomitant]
     Active Substance: IVABRADINE
  16. AMLODIPINE [Concomitant]
     Active Substance: AMLODIPINE BESYLATE
  17. CANRENONE [Concomitant]
     Active Substance: CANRENONE
  18. ALIFLUS [Concomitant]
     Active Substance: FLUTICASONE PROPIONATE\SALMETEROL XINAFOATE
  19. SERETIDE [Concomitant]
     Active Substance: FLUTICASONE FUROATE\SALMETEROL XINAFOATE
  20. VASELINE PURE [Concomitant]
     Active Substance: PETROLATUM
  21. TORVAST [Concomitant]
     Active Substance: ATORVASTATIN
  22. ELECTROLYTES NOS [Concomitant]
     Active Substance: ELECTROLYTES NOS
  23. EPOETIN [Concomitant]
     Active Substance: ERYTHROPOIETIN
  24. PHENOBARBITAL. [Suspect]
     Active Substance: PHENOBARBITAL
     Indication: STATUS EPILEPTICUS
     Route: 030
     Dates: start: 20140110, end: 20150117
  25. PARACETAMOL [Concomitant]
     Active Substance: ACETAMINOPHEN
  26. ADENURIC [Concomitant]
     Active Substance: FEBUXOSTAT
  27. CODEX [Concomitant]
     Active Substance: ACETAMINOPHEN\CODEINE PHOSPHATE
  28. CLOPIDOGREL [Concomitant]
     Active Substance: CLOPIDOGREL BISULFATE
  29. DEPAKIN [Concomitant]
     Active Substance: VALPROATE SODIUM
  30. CALCIUM CARBONATE. [Concomitant]
     Active Substance: CALCIUM CARBONATE
  31. FOLIC ACID. [Concomitant]
     Active Substance: FOLIC ACID
  32. KCL [Concomitant]
     Active Substance: POTASSIUM CHLORIDE
  33. FUROSEMIDE. [Concomitant]
     Active Substance: FUROSEMIDE
  34. CALCITRIOL. [Concomitant]
     Active Substance: CALCITRIOL

REACTIONS (30)
  - Metabolic acidosis [None]
  - Hemiparesis [None]
  - Hypovolaemic shock [None]
  - Pneumonia klebsiella [None]
  - Respiratory failure [None]
  - Sopor [None]
  - Gastroenteritis clostridial [None]
  - Dehydration [None]
  - Bronchopneumopathy [None]
  - Cardiac failure [None]
  - Acute kidney injury [None]
  - Underdose [None]
  - Refusal of treatment by patient [None]
  - Confusional state [None]
  - Infective exacerbation of chronic obstructive airways disease [None]
  - Altered state of consciousness [None]
  - Decreased appetite [None]
  - Cardiac failure acute [None]
  - Lethargy [None]
  - Hypokalaemia [None]
  - Infusion site pain [None]
  - Cardiac murmur [None]
  - Hypovolaemia [None]
  - Hypoxia [None]
  - Hypertensive crisis [None]
  - Cognitive disorder [None]
  - Blood calcium decreased [None]
  - Disorientation [None]
  - Escherichia urinary tract infection [None]
  - Septic shock [None]

NARRATIVE: CASE EVENT DATE: 20150121
